FAERS Safety Report 5925239-5 (Version None)
Quarter: 2008Q4

REPORT INFORMATION
  Report Type: 
  Country: None (occurrence: None)
  Receive Date: 20081020
  Receipt Date: 20081020
  Transmission Date: 20090506
  Serious: Yes (Hospitalization)
  Sender: FDA-Public Use
  Company Number: None

PATIENT
  Age: 53 Year
  Sex: Male

DRUGS (1)
  1. FLUOROURACIL [Suspect]
     Indication: COLON CANCER
     Dosage: IV  (DURATION: ONE DOSE)
     Route: 042

REACTIONS (6)
  - CARDIOMYOPATHY [None]
  - CARDIOTOXICITY [None]
  - CHEST PAIN [None]
  - GASTRITIS [None]
  - GASTROINTESTINAL TOXICITY [None]
  - GENE MUTATION [None]
